FAERS Safety Report 11324715 (Version 3)
Quarter: 2015Q4

REPORT INFORMATION
  Report Type: Report from Study
  Country: JP (occurrence: JP)
  Receive Date: 20150730
  Receipt Date: 20151104
  Transmission Date: 20160304
  Serious: Yes (Life-Threatening, Other)
  Sender: FDA-Public Use
  Company Number: JP-MALLINCKRODT-T201503632

PATIENT
  Age: 50 Year
  Sex: Female
  Weight: 45 kg

DRUGS (36)
  1. OFIRMEV [Suspect]
     Active Substance: ACETAMINOPHEN
     Indication: PYREXIA
     Dosage: 4000MG (1000 MG,  4/1 DAY)
     Route: 042
     Dates: start: 20150214, end: 20150218
  2. OFIRMEV [Suspect]
     Active Substance: ACETAMINOPHEN
     Dosage: 4000MG (1000MG 4/1 DAY)
     Route: 042
     Dates: start: 20150317, end: 20150318
  3. OFIRMEV [Suspect]
     Active Substance: ACETAMINOPHEN
     Dosage: 4000MG (1000MG 4/1 DAY)
     Route: 042
     Dates: start: 20150320, end: 20150323
  4. FENTANYL CITRATE. [Concomitant]
     Active Substance: FENTANYL CITRATE
     Dosage: UNK
     Route: 042
  5. METHYLPREDNISOLONE. [Concomitant]
     Active Substance: METHYLPREDNISOLONE
     Dosage: UNK
     Route: 065
  6. OFIRMEV [Suspect]
     Active Substance: ACETAMINOPHEN
     Dosage: 500 MG (500MG 1/1 DAY)
     Route: 042
     Dates: start: 20150223, end: 20150223
  7. OFIRMEV [Suspect]
     Active Substance: ACETAMINOPHEN
     Dosage: 2000MG (1000MG 2/1 DAY)
     Route: 042
     Dates: start: 20150303, end: 20150304
  8. FAMOTIDINE. [Concomitant]
     Active Substance: FAMOTIDINE
     Dosage: UNK
     Route: 065
  9. MORPHINE HYDROCHLORIDE [Concomitant]
     Active Substance: MORPHINE HYDROCHLORIDE
     Dosage: UNK
  10. POPSCAINE [Concomitant]
     Active Substance: LEVOBUPIVACAINE HYDROCHLORIDE
     Dosage: UNK
     Route: 042
  11. MARCAINE [Concomitant]
     Active Substance: BUPIVACAINE HYDROCHLORIDE
     Dosage: UNK
     Route: 042
  12. OFIRMEV [Suspect]
     Active Substance: ACETAMINOPHEN
     Dosage: 3000MG (1000MG 3/1 DAY)
     Route: 042
     Dates: start: 20150315, end: 20150316
  13. XYLOCAINE [Concomitant]
     Active Substance: LIDOCAINE HYDROCHLORIDE
     Dosage: UNK
     Route: 042
  14. ALBUMIN [Concomitant]
     Active Substance: ALBUMIN (HUMAN)
     Dosage: UNK
     Route: 042
  15. PRECEDEX [Concomitant]
     Active Substance: DEXMEDETOMIDINE HYDROCHLORIDE
     Dosage: UNK
     Route: 042
  16. OFIRMEV [Suspect]
     Active Substance: ACETAMINOPHEN
     Dosage: 4000MG (1000MG 4/1
     Route: 042
     Dates: start: 20150305, end: 20150314
  17. OFIRMEV [Suspect]
     Active Substance: ACETAMINOPHEN
     Dosage: 2000MG (1000MG 2/1 DAY)
     Route: 042
     Dates: start: 20150324, end: 20150324
  18. OXINORM [Concomitant]
     Active Substance: OXYCODONE HYDROCHLORIDE
     Dosage: UNK
     Route: 048
  19. CALONAL [Concomitant]
     Active Substance: ACETAMINOPHEN
     Dosage: 3600 MG
     Route: 048
  20. KETALAR [Concomitant]
     Active Substance: KETAMINE HYDROCHLORIDE
     Dosage: UNK
     Route: 042
  21. OXYCONTIN [Concomitant]
     Active Substance: OXYCODONE HYDROCHLORIDE
     Dosage: UNK
     Route: 048
  22. MAGLAX [Concomitant]
     Active Substance: MAGNESIUM OXIDE
     Dosage: UNK
     Route: 048
  23. MORPHINE HYDROCHLORIDE [Concomitant]
     Active Substance: MORPHINE HYDROCHLORIDE
     Dosage: UNK
     Route: 050
  24. ISOTONIC SODIUM CHLORIDE SOLUTION [Concomitant]
     Active Substance: SODIUM CHLORIDE
     Dosage: UNK
     Route: 042
  25. MIDAZOLAM [Concomitant]
     Active Substance: MIDAZOLAM\MIDAZOLAM HYDROCHLORIDE
     Dosage: UNK
     Route: 042
  26. FRANDOL [Concomitant]
     Active Substance: ISOSORBIDE DINITRATE
     Dosage: UNK
     Route: 062
  27. OFIRMEV [Suspect]
     Active Substance: ACETAMINOPHEN
     Dosage: 2000MG (1000MG 2/1 DAY)
     Route: 042
     Dates: start: 20150219, end: 20150219
  28. OFIRMEV [Suspect]
     Active Substance: ACETAMINOPHEN
     Dosage: 3000MG (1000MG 3/1 DAY)
     Route: 042
     Dates: start: 20150319, end: 20150319
  29. ZOLPIDEM [Concomitant]
     Active Substance: ZOLPIDEM\ZOLPIDEM TARTRATE
     Dosage: UNK
     Route: 065
  30. CONTOMIN [Concomitant]
     Active Substance: CHLORPROMAZINE
     Dosage: UNK
     Route: 030
  31. OFIRMEV [Suspect]
     Active Substance: ACETAMINOPHEN
     Indication: CANCER PAIN
     Dosage: 3000MG (1000MG 3/1 DAY)
     Route: 042
     Dates: start: 20150213, end: 20150213
  32. QUAZEPAM. [Concomitant]
     Active Substance: QUAZEPAM
     Route: 048
  33. JUZENTAIHOTO [Concomitant]
     Dosage: UNK
     Route: 048
  34. ALOSENN [Concomitant]
     Active Substance: SENNA LEAF
     Dosage: UNK
     Route: 065
  35. ROHYPNOL [Concomitant]
     Active Substance: FLUNITRAZEPAM
     Dosage: UNK
     Route: 065
  36. NEO SYNESIN [Concomitant]
     Active Substance: PHENYLEPHRINE HYDROCHLORIDE
     Dosage: UNK
     Route: 042

REACTIONS (1)
  - Hepatitis fulminant [Recovered/Resolved]

NARRATIVE: CASE EVENT DATE: 20150324
